FAERS Safety Report 22965711 (Version 4)
Quarter: 2023Q4

REPORT INFORMATION
  Report Type: Spontaneous
  Country: GR (occurrence: GR)
  Receive Date: 20230921
  Receipt Date: 20231108
  Transmission Date: 20240110
  Serious: No
  Sender: FDA-Public Use
  Company Number: GR-PFIZER INC-202300288882

PATIENT
  Age: 12 Year
  Sex: Female
  Weight: 44 kg

DRUGS (2)
  1. GENOTROPIN [Suspect]
     Active Substance: SOMATROPIN
     Indication: Hypopituitarism
     Dosage: 9 MG, WEEKLY
     Route: 058
     Dates: start: 202304
  2. LEVOTHYROXINE [Concomitant]
     Active Substance: LEVOTHYROXINE
     Indication: Autoimmune thyroiditis
     Dosage: 25 MG, (1X1)

REACTIONS (2)
  - Drug dose omission by device [Unknown]
  - Device leakage [Unknown]
